FAERS Safety Report 4791561-1 (Version None)
Quarter: 2005Q4

REPORT INFORMATION
  Report Type: 
  Country: None (occurrence: None)
  Receive Date: 20051007
  Receipt Date: 20050308
  Transmission Date: 20060501
  Serious: No
  Sender: FDA-Public Use
  Company Number: US-BRISTOL-MYERS SQUIBB COMPANY-12891107

PATIENT
  Age: 73 Year
  Sex: Male

DRUGS (3)
  1. AVAPRO [Suspect]
  2. EXCEDRIN (MIGRAINE) [Concomitant]
  3. LESCOL [Concomitant]

REACTIONS (1)
  - DIZZINESS [None]
